FAERS Safety Report 6121952-8 (Version None)
Quarter: 2009Q1

REPORT INFORMATION
  Report Type: 
  Country: None (occurrence: None)
  Receive Date: 20090313
  Receipt Date: 20090225
  Transmission Date: 20090719
  Serious: Yes (Other)
  Sender: FDA-Public Use
  Company Number: 2009S1002291

PATIENT
  Age: 39 Year
  Sex: Female

DRUGS (3)
  1. KALIXOCIN (CLARITHROMYCIN) [Suspect]
     Indication: SINUSITIS
     Dosage: 250 MG; TWICE A DAY, ORAL
     Route: 048
     Dates: start: 20090119, end: 20090126
  2. CLARITIN [Suspect]
     Indication: SINUSITIS
     Dates: start: 20090119, end: 20090120
  3. ACETAMINOPHEN [Suspect]
     Indication: PAIN
     Dates: start: 20090119, end: 20090119

REACTIONS (2)
  - ABORTION SPONTANEOUS [None]
  - DRUG EXPOSURE DURING PREGNANCY [None]
